FAERS Safety Report 9997557 (Version 1)
Quarter: 2014Q1

REPORT INFORMATION
  Report Type: Spontaneous
  Country: US (occurrence: None)
  Receive Date: 20140304
  Receipt Date: 20140304
  Transmission Date: 20141002
  Serious: Yes (Other)
  Sender: FDA-Public Use
  Company Number: RB-57286-2013

PATIENT
  Age: 39 Year
  Sex: Male

DRUGS (3)
  1. SUBOXONE 8 MG [Suspect]
     Indication: DRUG DEPENDENCE
     Route: 060
     Dates: start: 201305, end: 201305
  2. SUBOXONE 8 MG [Suspect]
     Indication: DRUG DEPENDENCE
     Route: 060
     Dates: start: 2011, end: 2011
  3. SUBUTEX [Suspect]
     Indication: DRUG DEPENDENCE
     Route: 060
     Dates: start: 2011, end: 201305

REACTIONS (9)
  - Hallucination [None]
  - Vomiting [None]
  - Abdominal pain upper [None]
  - Diarrhoea [None]
  - Dyspnoea [None]
  - Drug withdrawal syndrome [None]
  - Substance abuse [None]
  - Feeling of body temperature change [None]
  - Drug abuse [None]
